FAERS Safety Report 5526577-0 (Version None)
Quarter: 2007Q4

REPORT INFORMATION
  Report Type: 
  Country: None (occurrence: None)
  Receive Date: 20071121
  Receipt Date: 20071121
  Transmission Date: 20080405
  Serious: Yes (Hospitalization)
  Sender: FDA-Public Use
  Company Number: None

PATIENT
  Sex: Male
  Weight: 103 kg

DRUGS (22)
  1. CYTOXAN [Suspect]
  2. ADRIAMYCIN PFS [Suspect]
  3. ONCOVIN [Suspect]
  4. PREDNISONE TAB [Suspect]
  5. CAMPATH [Suspect]
  6. COLACE [Concomitant]
  7. NEXIUM [Concomitant]
  8. FLUVASTATIN [Concomitant]
  9. SYNTHROID [Concomitant]
  10. PRINIVIL [Concomitant]
  11. METOPROLOL SUCCINATE EXTENDED RELEASE [Concomitant]
  12. SENNA [Concomitant]
  13. SULFA/TMP DS [Concomitant]
  14. VALGANCICLOVIR HCL [Concomitant]
  15. AMBIEN [Concomitant]
  16. GLUCOPHAGE [Concomitant]
  17. GLUCOTROL XL [Concomitant]
  18. ASPIRIN [Concomitant]
  19. FLOMAX/REGLAN [Concomitant]
  20. OXYCONDONE [Concomitant]
  21. ATIVAN [Concomitant]
  22. ZOFRAN [Concomitant]

REACTIONS (6)
  - ARTHRALGIA [None]
  - DISEASE PROGRESSION [None]
  - FATIGUE [None]
  - MYALGIA [None]
  - NIGHT SWEATS [None]
  - PYREXIA [None]
